FAERS Safety Report 6903862-9 (Version None)
Quarter: 2010Q3

REPORT INFORMATION
  Report Type: 
  Country: None (occurrence: None)
  Receive Date: 20100804
  Receipt Date: 20090121
  Transmission Date: 20110219
  Serious: No
  Sender: FDA-Public Use
  Company Number: US-PFIZER INC-2008087766

PATIENT
  Sex: Female
  Weight: 77.11 kg

DRUGS (8)
  1. LYRICA [Suspect]
     Indication: FIBROMYALGIA
     Dosage: DAILY EVERY DAY
     Route: 048
     Dates: start: 20081010, end: 20081011
  2. OXYCODONE [Concomitant]
  3. MORPHINE SULFATE [Concomitant]
  4. AVAPRO [Concomitant]
  5. AMIODARONE HCL [Concomitant]
  6. WARFARIN SODIUM [Concomitant]
  7. LEVOXYL [Concomitant]
  8. ANTIHYPERTENSIVES [Concomitant]

REACTIONS (3)
  - DIZZINESS [None]
  - SOMNOLENCE [None]
  - UNEVALUABLE EVENT [None]
